FAERS Safety Report 17215838 (Version 1)
Quarter: 2019Q4

REPORT INFORMATION
  Report Type: Spontaneous
  Country: GR (occurrence: GR)
  Receive Date: 20191230
  Receipt Date: 20191230
  Transmission Date: 20200122
  Serious: Yes (Hospitalization, Other)
  Sender: FDA-Public Use
  Company Number: GR-GALDERMA-GR19077444

PATIENT
  Age: 74 Year
  Sex: Female

DRUGS (2)
  1. CEFOXITIN [Concomitant]
     Active Substance: CEFOXITIN SODIUM
     Indication: ANTIBIOTIC THERAPY
     Route: 065
  2. METRONIDAZOLE. [Suspect]
     Active Substance: METRONIDAZOLE
     Indication: ANTIBIOTIC THERAPY
     Route: 065

REACTIONS (2)
  - Systemic candida [Recovered/Resolved]
  - Pyrexia [Recovered/Resolved]
